FAERS Safety Report 9118429 (Version 1)
Quarter: 2013Q1

REPORT INFORMATION
  Report Type: Spontaneous
  Country: US (occurrence: None)
  Receive Date: 20130221
  Receipt Date: 20130221
  Transmission Date: 20140127
  Serious: Yes (Life-Threatening)
  Sender: FDA-Public Use
  Company Number: None

PATIENT
  Age: 4 Year
  Sex: Male
  Weight: 20 kg

DRUGS (1)
  1. TORADOL 30MG PER CC [Suspect]
     Indication: INTRAOPERATIVE CARE
     Route: 042
     Dates: start: 20130219, end: 20130219

REACTIONS (2)
  - Lip swelling [None]
  - Dyspnoea [None]
